FAERS Safety Report 8664138 (Version 3)
Quarter: 2012Q4

REPORT INFORMATION
  Report Type: 
  Country: JP (occurrence: JP)
  Receive Date: 20120713
  Receipt Date: 20121227
  Transmission Date: 20130627
  Serious: Yes (Other)
  Sender: FDA-Public Use
  Company Number: JP-VERTEX PHARMACEUTICAL INC.-AE-2012-010054

PATIENT
  Age: 51 Year
  Sex: Male

DRUGS (9)
  1. TELAVIC [Suspect]
     Indication: CHRONIC HEPATITIS C
     Dosage: 1500 mg, qd
     Route: 048
     Dates: start: 20120508, end: 20120730
  2. RIBAVIRIN [Suspect]
     Indication: HEPATITIS C
     Dosage: 800 mg, qd
     Route: 048
     Dates: start: 20120508, end: 20120603
  3. RIBAVIRIN [Suspect]
     Dosage: 400 mg, qd
     Route: 048
     Dates: start: 20120604, end: 20120730
  4. RIBAVIRIN [Suspect]
     Dosage: 600 mg, qd
     Route: 048
     Dates: start: 20120731
  5. PEGINTERFERON ALFA-2B [Suspect]
     Indication: HEPATITIS C
     Dosage: 1.5 ?g/kg, qw
     Route: 058
     Dates: start: 20120508, end: 20120528
  6. PEGINTERFERON ALFA-2B [Suspect]
     Dosage: 1.3 ?g/kg, qw
     Route: 058
     Dates: start: 20120604
  7. GASTER [Concomitant]
     Dosage: 40 mg, qd
     Route: 048
     Dates: start: 20120511
  8. POSTERISAN [Concomitant]
     Dosage: 2 g/day, prn
     Route: 061
     Dates: start: 20120518
  9. POSTERISAN [Concomitant]
     Dosage: 2 g, qd
     Route: 061

REACTIONS (3)
  - White blood cell count decreased [Recovered/Resolved]
  - Headache [Recovered/Resolved]
  - Anaemia [Recovered/Resolved]
